FAERS Safety Report 16089033 (Version 1)
Quarter: 2019Q1

REPORT INFORMATION
  Report Type: Report from Study
  Country: US (occurrence: US)
  Receive Date: 20190319
  Receipt Date: 20190319
  Transmission Date: 20190418
  Serious: Yes (Hospitalization)
  Sender: FDA-Public Use
  Company Number: US-ROCHE-2181160

PATIENT
  Age: 69 Year
  Sex: Female

DRUGS (33)
  1. ECOTRIN [Concomitant]
     Active Substance: ASPIRIN
     Route: 065
     Dates: start: 20180904
  2. L-LYSINE [Concomitant]
     Active Substance: LYSINE
     Route: 065
     Dates: start: 20180922
  3. MIRALAX [Concomitant]
     Active Substance: POLYETHYLENE GLYCOL 3350
     Indication: CONSTIPATION PROPHYLAXIS
     Route: 065
     Dates: start: 20180905, end: 20180917
  4. TORADOL [Concomitant]
     Active Substance: KETOROLAC TROMETHAMINE
     Indication: PAIN
     Route: 065
     Dates: start: 20180905, end: 20180910
  5. ATEZOLIZUMAB. [Suspect]
     Active Substance: ATEZOLIZUMAB
     Indication: OVARIAN CANCER
     Dosage: ADMINISTERED PRIOR TO AE/SAE ONSET: 21/AUG/2018?ON DAY 1 OF EACH 21-DAY CYCLE
     Route: 042
     Dates: start: 20180821
  6. CARBOPLATIN. [Suspect]
     Active Substance: CARBOPLATIN
     Indication: OVARIAN CANCER
     Dosage: DATE OF MOST RECENT DOSE OF CARBOPLATIN (513 MG) PRIOR TO AE ONSET: 21/AUG/2018?AT A DOSE TO ACHIEVE
     Route: 042
     Dates: start: 20180821
  7. ONDANSETRON [Concomitant]
     Active Substance: ONDANSETRON
     Indication: VOMITING
     Route: 065
     Dates: start: 20180821
  8. VITAMIN C [Concomitant]
     Active Substance: ASCORBIC ACID
  9. ELIQUIS [Concomitant]
     Active Substance: APIXABAN
     Indication: THROMBOSIS PROPHYLAXIS
     Route: 065
     Dates: start: 20180809, end: 20180904
  10. DILAUDID [Concomitant]
     Active Substance: HYDROMORPHONE HYDROCHLORIDE
     Route: 065
     Dates: start: 20180914, end: 20180914
  11. NIACIN. [Concomitant]
     Active Substance: NIACIN
     Route: 065
     Dates: start: 20180904
  12. BIOTIN [Concomitant]
     Active Substance: BIOTIN
     Route: 065
     Dates: start: 20180922
  13. CALCIUM GLUCONATE. [Concomitant]
     Active Substance: CALCIUM GLUCONATE
     Indication: HYPOCALCAEMIA
     Route: 065
     Dates: start: 20180909, end: 20180909
  14. ACETAMINOPHEN. [Concomitant]
     Active Substance: ACETAMINOPHEN
     Indication: PAIN
     Route: 065
     Dates: start: 20180904, end: 20180917
  15. UNITHROID [Concomitant]
     Active Substance: LEVOTHYROXINE SODIUM
     Indication: HYPOTHYROIDISM
     Route: 065
     Dates: start: 20180815
  16. PEPCID (UNITED STATES) [Concomitant]
     Indication: PREMEDICATION
     Route: 065
     Dates: start: 20180821, end: 20180821
  17. COLACE [Concomitant]
     Active Substance: DOCUSATE SODIUM
     Indication: CONSTIPATION PROPHYLAXIS
     Route: 065
     Dates: start: 20180904, end: 20180917
  18. LORAZEPAM. [Concomitant]
     Active Substance: LORAZEPAM
     Route: 065
     Dates: start: 20180913, end: 20180913
  19. OMEGA 3 [Concomitant]
     Active Substance: OMEGA-3 FATTY ACIDS
     Route: 065
     Dates: start: 20180904
  20. BENADRYL [Concomitant]
     Active Substance: DIPHENHYDRAMINE HYDROCHLORIDE
     Route: 065
     Dates: start: 20180821, end: 20180821
  21. ANCEF (UNITED STATES) [Concomitant]
     Route: 065
     Dates: start: 20180914, end: 20180914
  22. MEROPENEM. [Concomitant]
     Active Substance: MEROPENEM
     Indication: PYREXIA
     Route: 065
     Dates: start: 20180904, end: 20180911
  23. PACLITAXEL. [Suspect]
     Active Substance: PACLITAXEL
     Indication: OVARIAN CANCER
     Dosage: DATE OF MOST RECENT DOSE OF PACLITAXEL (268 MG) PRIOR TO AE ONSET: 21/AUG/2018
     Route: 042
     Dates: start: 20180821
  24. DEXAMETHASONE. [Concomitant]
     Active Substance: DEXAMETHASONE
     Route: 065
     Dates: start: 20180820, end: 20180821
  25. DEXAMETHASONE. [Concomitant]
     Active Substance: DEXAMETHASONE
     Route: 042
     Dates: start: 20180821, end: 20180821
  26. INOSITOL [Concomitant]
     Active Substance: INOSITOL
     Route: 065
     Dates: start: 20180922
  27. ESTRADIOL. [Concomitant]
     Active Substance: ESTRADIOL
     Route: 065
     Dates: start: 20180904
  28. PEPCID (UNITED STATES) [Concomitant]
     Route: 065
     Dates: start: 20180921, end: 20180921
  29. FAMOTIDINE. [Concomitant]
     Active Substance: FAMOTIDINE
     Route: 065
     Dates: start: 20180911, end: 20180917
  30. MAGNESIUM CITRATE. [Concomitant]
     Active Substance: MAGNESIUM CITRATE
     Indication: CONSTIPATION
     Route: 065
     Dates: start: 20180906, end: 20180906
  31. MILK OF MAGNESIA [Concomitant]
     Active Substance: MAGNESIUM HYDROXIDE
     Indication: CONSTIPATION PROPHYLAXIS
     Route: 065
     Dates: start: 20180906, end: 20180913
  32. POTASSIUM CHLORIDE. [Concomitant]
     Active Substance: POTASSIUM CHLORIDE
     Indication: HYPOKALAEMIA
     Route: 065
     Dates: start: 20180907, end: 20180916
  33. ALTEPLASE. [Concomitant]
     Active Substance: ALTEPLASE
     Route: 065
     Dates: start: 20180908, end: 20180908

REACTIONS (3)
  - Pyrexia [Recovered/Resolved]
  - Muscular weakness [Not Recovered/Not Resolved]
  - Myositis [Not Recovered/Not Resolved]

NARRATIVE: CASE EVENT DATE: 20180904
